FAERS Safety Report 13341212 (Version 1)
Quarter: 2017Q1

REPORT INFORMATION
  Report Type: Spontaneous
  Country: US (occurrence: US)
  Receive Date: 20170316
  Receipt Date: 20170316
  Transmission Date: 20170428
  Serious: Yes (Hospitalization)
  Sender: FDA-Public Use
  Company Number: PHEH2017US007144

PATIENT
  Age: 73 Year
  Sex: Female

DRUGS (1)
  1. JADENU [Suspect]
     Active Substance: DEFERASIROX
     Indication: HAEMOCHROMATOSIS
     Dosage: 360 MG, TID
     Route: 048
     Dates: start: 20161213

REACTIONS (2)
  - Pain in extremity [Unknown]
  - Localised infection [Unknown]

NARRATIVE: CASE EVENT DATE: 20170305
